FAERS Safety Report 23292906 (Version 3)
Quarter: 2023Q4

REPORT INFORMATION
  Report Type: Spontaneous
  Country: BR (occurrence: BR)
  Receive Date: 20231213
  Receipt Date: 20231219
  Transmission Date: 20240110
  Serious: Yes (Other)
  Sender: FDA-Public Use
  Company Number: BR-JNJFOC-20231215091

PATIENT
  Sex: Male

DRUGS (2)
  1. HALDOL [Suspect]
     Active Substance: HALOPERIDOL
     Indication: Product used for unknown indication
     Dosage: HADOL CPR 5MG
     Route: 065
  2. VALPROATE [Concomitant]
     Active Substance: VALPROIC ACID
     Indication: Product used for unknown indication
     Route: 065

REACTIONS (5)
  - Paralysis [Recovering/Resolving]
  - Movement disorder [Recovering/Resolving]
  - Freezing phenomenon [Recovering/Resolving]
  - Dyspnoea [Recovering/Resolving]
  - Salivary hypersecretion [Recovering/Resolving]
